FAERS Safety Report 13270632 (Version 2)
Quarter: 2017Q1

REPORT INFORMATION
  Report Type: Spontaneous
  Country: US (occurrence: US)
  Receive Date: 20170224
  Receipt Date: 20170313
  Transmission Date: 20170428
  Serious: Yes (Hospitalization)
  Sender: FDA-Public Use
  Company Number: US-BIOMARINAP-US-2017-112873

PATIENT
  Age: 14 Year
  Sex: Male
  Weight: 33.18 kg

DRUGS (1)
  1. NAGLAZYME [Suspect]
     Active Substance: GALSULFASE
     Indication: MUCOPOLYSACCHARIDOSIS VI
     Dosage: 35 MG, QW
     Route: 042

REACTIONS (5)
  - Chills [Unknown]
  - Pyrexia [Recovered/Resolved]
  - Lacrimation increased [Unknown]
  - Nasopharyngitis [Unknown]
  - Feeling cold [Unknown]

NARRATIVE: CASE EVENT DATE: 20170213
